FAERS Safety Report 5024771-9 (Version None)
Quarter: 2006Q2

REPORT INFORMATION
  Report Type: 
  Country: None (occurrence: None)
  Receive Date: 20060426
  Receipt Date: 20060216
  Transmission Date: 20061013
  Serious: Yes (Other)
  Sender: FDA-Public Use
  Company Number: 2006025454

PATIENT
  Age: 79 Year
  Sex: Male
  Weight: 81.6475 kg

DRUGS (6)
  1. LYRICA [Suspect]
     Indication: NERVE INJURY
     Dosage: 150 MG (50 MG, 3 IN 1D)
     Dates: start: 20051201
  2. SYNTHROID [Concomitant]
  3. ZYLOPRIM [Concomitant]
  4. TRICOR [Concomitant]
  5. PRAVACHOL [Concomitant]
  6. IMITREX [Concomitant]

REACTIONS (5)
  - ALOPECIA [None]
  - FLUSHING [None]
  - INCREASED APPETITE [None]
  - SNORING [None]
  - WEIGHT INCREASED [None]
